FAERS Safety Report 5403560-7 (Version None)
Quarter: 2007Q3

REPORT INFORMATION
  Report Type: 
  Country: None (occurrence: None)
  Receive Date: 20070730
  Receipt Date: 20070724
  Transmission Date: 20080115
  Serious: Yes (Hospitalization)
  Sender: FDA-Public Use
  Company Number: SPV1-2007-03655

PATIENT

DRUGS (1)
  1. FOSRENOL [Suspect]

REACTIONS (1)
  - OESOPHAGEAL DISORDER [None]
